FAERS Safety Report 8766335 (Version 4)
Quarter: 2013Q2

REPORT INFORMATION
  Report Type: Spontaneous
  Country: US (occurrence: US)
  Receive Date: 20120904
  Receipt Date: 20130425
  Transmission Date: 20140414
  Serious: Yes (Hospitalization, Disabling, Other)
  Sender: FDA-Public Use
  Company Number: US-009507513-1102USA01927

PATIENT
  Sex: Female
  Weight: 58.97 kg

DRUGS (5)
  1. FOSAMAX [Suspect]
     Indication: OSTEOPOROSIS
     Dosage: 70 MG, QW
     Route: 048
     Dates: start: 200210, end: 200512
  2. FOSAMAX [Suspect]
     Dosage: 70 UNK, QW
     Route: 048
     Dates: start: 2010
  3. BONIVA [Suspect]
     Dates: start: 2006, end: 20101010
  4. BONIVA [Suspect]
     Dosage: 150 MG, QM
     Dates: start: 200601, end: 201010
  5. BONIVA [Suspect]
     Dosage: 150 MG, QM
     Route: 048
     Dates: start: 2004

REACTIONS (16)
  - Open reduction of fracture [Recovered/Resolved]
  - Uterine dilation and curettage [Recovered/Resolved]
  - Low turnover osteopathy [Not Recovered/Not Resolved]
  - Femur fracture [Recovered/Resolved]
  - Osteoarthritis [Not Recovered/Not Resolved]
  - Hypothyroidism [Not Recovered/Not Resolved]
  - Head injury [Recovered/Resolved]
  - Fall [Recovered/Resolved]
  - Nephrolithiasis [Unknown]
  - Synovial cyst [Unknown]
  - Herpes zoster [Unknown]
  - Bursitis [Unknown]
  - Road traffic accident [Unknown]
  - Contusion [Unknown]
  - Muscle strain [Unknown]
  - Pain in extremity [Recovering/Resolving]
